FAERS Safety Report 4285737-X (Version None)
Quarter: 2004Q1

REPORT INFORMATION
  Report Type: 
  Country: None (occurrence: None)
  Receive Date: 20040203
  Receipt Date: 20040126
  Transmission Date: 20041129
  Serious: Yes (Other)
  Sender: FDA-Public Use
  Company Number: 2003121558

PATIENT
  Age: 83 Year
  Sex: Male
  Weight: 51 kg

DRUGS (4)
  1. SULPERAZON (CEFOPERAZONE, SULBACTAM) [Suspect]
     Indication: PNEUMONIA
     Dosage: 2 GRAM (BID), INTRAVENOUS
     Route: 042
     Dates: start: 20031126, end: 20031130
  2. UNASYN [Suspect]
     Indication: PNEUMONIA
     Dosage: 3 GRAM (BID), INTRAVENOUS
     Route: 042
     Dates: start: 20031124, end: 20031126
  3. LEVOFLOXACIN [Suspect]
     Indication: PNEUMONIA
     Dosage: 200 MG, ORAL
     Route: 048
     Dates: start: 20031126
  4. CLARITHROMYCIN [Concomitant]

REACTIONS (3)
  - DELIRIUM [None]
  - DRUG LEVEL INCREASED [None]
  - TREMOR [None]
